FAERS Safety Report 7047842-4 (Version None)
Quarter: 2010Q4

REPORT INFORMATION
  Report Type: 
  Country: None (occurrence: None)
  Receive Date: 20101014
  Receipt Date: 20101014
  Transmission Date: 20110411
  Serious: Yes (Other)
  Sender: FDA-Public Use
  Company Number: None

PATIENT
  Sex: Female

DRUGS (1)
  1. AMPYRA [Suspect]
     Indication: MULTIPLE SCLEROSIS
     Dosage: 10MG 1 TABLET DAILY BY MOUTH
     Route: 048

REACTIONS (4)
  - BALANCE DISORDER [None]
  - CONSTIPATION [None]
  - CONTUSION [None]
  - FALL [None]
